FAERS Safety Report 25423022 (Version 1)
Quarter: 2025Q2

REPORT INFORMATION
  Report Type: Spontaneous
  Country: US (occurrence: None)
  Receive Date: 20250610
  Receipt Date: 20250610
  Transmission Date: 20250717
  Serious: Yes (Hospitalization)
  Sender: FDA-CTU
  Company Number: None

PATIENT
  Age: 80 Year
  Sex: Male

DRUGS (2)
  1. CEFTRIAXONE SODIUM [Suspect]
     Active Substance: CEFTRIAXONE SODIUM
     Indication: Urinary tract infection
     Dates: start: 20250403, end: 20250403
  2. DIPHENHYDRAMINE HYDROCHLORIDE [Suspect]
     Active Substance: DIPHENHYDRAMINE HYDROCHLORIDE
     Dates: start: 20250403, end: 20250403

REACTIONS (4)
  - Anaphylactic reaction [None]
  - Mental status changes [None]
  - Aggression [None]
  - Urinary tract infection [None]

NARRATIVE: CASE EVENT DATE: 20250403
